FAERS Safety Report 21498050 (Version 3)
Quarter: 2022Q4

REPORT INFORMATION
  Report Type: Report from Study
  Country: BR (occurrence: BR)
  Receive Date: 20221024
  Receipt Date: 20221117
  Transmission Date: 20230113
  Serious: Yes (Other)
  Sender: FDA-Public Use
  Company Number: BR-NOVARTISPH-NVSC2022BR238584

PATIENT
  Age: 67 Year
  Sex: Female
  Weight: 56 kg

DRUGS (6)
  1. PANTOPRAZOLE [Suspect]
     Active Substance: PANTOPRAZOLE
     Indication: Abdominal discomfort
     Dosage: 1 DOSAGE FORM, QD, STARTED MANY YEARS AGO (ABOUT 4 OR 5)
     Route: 048
  2. PANTOPRAZOLE [Suspect]
     Active Substance: PANTOPRAZOLE
     Dosage: 1 DOSAGE FORM, QD (40 MG), AT FASTING (2 MONTHS AGO)
     Route: 048
  3. PANTOPRAZOLE [Suspect]
     Active Substance: PANTOPRAZOLE
     Dosage: 1 DOSAGE FORM, QD (40 MG), AT FASTING (MANY YEARS AGO)
     Route: 048
  4. RITUXIMAB [Suspect]
     Active Substance: RITUXIMAB
     Indication: Rheumatoid arthritis
     Dosage: UNK, EVERY 6 MONTHS, STARTED 2 YEARS AGO
     Route: 042
  5. ZOLPIDEM [Suspect]
     Active Substance: ZOLPIDEM TARTRATE
     Indication: Insomnia
     Dosage: 1 DOSAGE FORM, QD, AT NIGHT, STARTED SOME MONTHS AGO
     Route: 048
  6. ZOLPIDEM [Suspect]
     Active Substance: ZOLPIDEM TARTRATE
     Dosage: 1 DOSAGE FORM, QD, A FEW MONTHS AGO
     Route: 048

REACTIONS (9)
  - Rheumatoid arthritis [Unknown]
  - Arthralgia [Unknown]
  - Limb discomfort [Unknown]
  - Hypoaesthesia [Unknown]
  - Burning sensation [Recovering/Resolving]
  - Hypertension [Recovered/Resolved]
  - Insomnia [Recovering/Resolving]
  - Depression [Recovering/Resolving]
  - Weight decreased [Recovering/Resolving]

NARRATIVE: CASE EVENT DATE: 20221005
